FAERS Safety Report 7092697-5 (Version None)
Quarter: 2010Q4

REPORT INFORMATION
  Report Type: 
  Country: None (occurrence: None)
  Receive Date: 20101109
  Receipt Date: 20101109
  Transmission Date: 20110411
  Serious: Yes (Hospitalization)
  Sender: FDA-Public Use
  Company Number: None

PATIENT
  Age: 3 Year
  Sex: Male
  Weight: 12 kg

DRUGS (1)
  1. CHILDREN'S PAIN RELIEF 160MG/5ML TOPCARE [Suspect]

REACTIONS (3)
  - ANALGESIC DRUG LEVEL INCREASED [None]
  - MEDICATION ERROR [None]
  - PRODUCT PACKAGING ISSUE [None]
